FAERS Safety Report 20533360 (Version 1)
Quarter: 2022Q1

REPORT INFORMATION
  Report Type: Spontaneous
  Country: US (occurrence: US)
  Receive Date: 20220301
  Receipt Date: 20220301
  Transmission Date: 20220423
  Serious: No
  Sender: FDA-Public Use
  Company Number: US-SUNOVION-2022SUN000604

PATIENT
  Sex: Female

DRUGS (1)
  1. KYNMOBI [Suspect]
     Active Substance: APOMORPHINE HYDROCHLORIDE
     Indication: Parkinson^s disease
     Dosage: 35 MG
     Route: 060

REACTIONS (5)
  - Ocular discomfort [Unknown]
  - Drug effect less than expected [Unknown]
  - Dyspepsia [Unknown]
  - Headache [Unknown]
  - Overdose [Unknown]
